FAERS Safety Report 22066996 (Version 1)
Quarter: 2023Q1

REPORT INFORMATION
  Report Type: Spontaneous
  Country: US (occurrence: US)
  Receive Date: 20230306
  Receipt Date: 20230306
  Transmission Date: 20230418
  Serious: No
  Sender: FDA-Public Use
  Company Number: US-PLX PHARMA-2022PLX000079

PATIENT

DRUGS (1)
  1. VAZALORE [Suspect]
     Active Substance: ASPIRIN
     Indication: Headache
     Dosage: 325 MG, SINGLE,
     Route: 048
     Dates: start: 20221107

REACTIONS (2)
  - Epigastric discomfort [None]
  - Nausea [None]
